FAERS Safety Report 9799779 (Version 2)
Quarter: 2014Q1

REPORT INFORMATION
  Report Type: Spontaneous
  Country: US (occurrence: US)
  Receive Date: 20140106
  Receipt Date: 20140106
  Transmission Date: 20141002
  Serious: No
  Sender: FDA-Public Use
  Company Number: US-GILEAD-2010-0031524

PATIENT
  Sex: Female
  Weight: 80.29 kg

DRUGS (19)
  1. LETAIRIS [Suspect]
     Indication: PULMONARY ARTERIAL HYPERTENSION
     Route: 048
     Dates: start: 20100811
  2. DILTIAZEM [Concomitant]
  3. BUMETANIDE [Concomitant]
  4. ASPIRIN [Concomitant]
  5. ADVAIR [Concomitant]
  6. SPIRIVA [Concomitant]
  7. PROAIR [Concomitant]
  8. NEXIUM [Concomitant]
  9. LYRICA [Concomitant]
  10. VENLAFAXINE [Concomitant]
  11. BACLOFEN [Concomitant]
  12. PYRIDOSTIGMINE BR [Concomitant]
  13. CLARITIN [Concomitant]
  14. KLOR-CON M10 [Concomitant]
  15. ALL DAY CALCIUM ER [Concomitant]
  16. VITAMIN D [Concomitant]
  17. IRON [Concomitant]
  18. B-12 [Concomitant]
  19. VITAMIN A [Concomitant]

REACTIONS (3)
  - Local swelling [Unknown]
  - Weight increased [Unknown]
  - Oedema [Unknown]
